FAERS Safety Report 6479503-4 (Version None)
Quarter: 2009Q4

REPORT INFORMATION
  Report Type: 
  Country: None (occurrence: None)
  Receive Date: 20091207
  Receipt Date: 20091207
  Transmission Date: 20100525
  Serious: Yes (Life-Threatening, Hospitalization)
  Sender: FDA-Public Use
  Company Number: None

PATIENT
  Age: 38 Year
  Sex: Female
  Weight: 87 kg

DRUGS (1)
  1. PROPYLTHIOURACIL 50MG TAB [Suspect]
     Indication: HYPERTHYROIDISM
     Dosage: 350MG DIVIDED TID PO RECENTLY STARTED
     Route: 048

REACTIONS (3)
  - ANTI-NEUTROPHIL CYTOPLASMIC ANTIBODY POSITIVE VASCULITIS [None]
  - BACK PAIN [None]
  - PULMONARY HAEMORRHAGE [None]
